FAERS Safety Report 25281203 (Version 2)
Quarter: 2025Q2

REPORT INFORMATION
  Report Type: Spontaneous
  Country: CH (occurrence: CH)
  Receive Date: 20250508
  Receipt Date: 20250609
  Transmission Date: 20250717
  Serious: Yes (Hospitalization)
  Sender: ROCHE
  Company Number: CH-ROCHE-10000271787

PATIENT
  Age: 63 Year
  Sex: Female
  Weight: 62.1 kg

DRUGS (28)
  1. CELLCEPT [Suspect]
     Active Substance: MYCOPHENOLATE MOFETIL
     Indication: Immunosuppressant drug therapy
     Route: 048
  2. CELLCEPT [Suspect]
     Active Substance: MYCOPHENOLATE MOFETIL
     Indication: Graft versus host disease in lung
     Route: 065
  3. CELLCEPT [Suspect]
     Active Substance: MYCOPHENOLATE MOFETIL
     Indication: Obliterative bronchiolitis
  4. CELLCEPT [Suspect]
     Active Substance: MYCOPHENOLATE MOFETIL
     Indication: Bronchopulmonary aspergillosis
  5. RUXOLITINIB [Concomitant]
     Active Substance: RUXOLITINIB
     Indication: Chronic graft versus host disease
  6. RUXOLITINIB [Concomitant]
     Active Substance: RUXOLITINIB
     Indication: Immunosuppressant drug therapy
  7. AmBisome Glucose 5% [Concomitant]
     Route: 042
  8. XOSPATA [Concomitant]
     Active Substance: GILTERITINIB
     Route: 048
  9. Prednisone Streuli [Concomitant]
     Route: 048
  10. ESBRIET [Concomitant]
     Active Substance: PIRFENIDONE
     Route: 048
  11. LIVTENCITY [Concomitant]
     Active Substance: MARIBAVIR
     Route: 048
  12. VALACYCLOVIR HYDROCHLORIDE [Concomitant]
     Active Substance: VALACYCLOVIR HYDROCHLORIDE
     Route: 048
  13. SULFAMETHOXAZOLE\TRIMETHOPRIM [Concomitant]
     Active Substance: SULFAMETHOXAZOLE\TRIMETHOPRIM
     Route: 048
  14. AZITHROMYCIN ANHYDROUS [Concomitant]
     Active Substance: AZITHROMYCIN ANHYDROUS
     Route: 048
  15. PANTOPRAZOLE SODIUM [Concomitant]
     Active Substance: PANTOPRAZOLE SODIUM
     Route: 048
  16. METOCLOPRAMIDE HYDROCHLORIDE [Concomitant]
     Active Substance: METOCLOPRAMIDE HYDROCHLORIDE
     Route: 048
  17. OLODATEROL HYDROCHLORIDE\TIOTROPIUM BROMIDE MONOHYDRATE [Concomitant]
     Active Substance: OLODATEROL HYDROCHLORIDE\TIOTROPIUM BROMIDE MONOHYDRATE
  18. PULMICORT TURBUHALER [Concomitant]
     Active Substance: BUDESONIDE
  19. VITAMIN D3 [Concomitant]
     Active Substance: CHOLECALCIFEROL
     Route: 048
  20. POTASSIUM CHLORIDE [Concomitant]
     Active Substance: POTASSIUM CHLORIDE
     Route: 048
  21. MAGNESIUM ASPARTATE HYDROCHLORIDE [Concomitant]
     Active Substance: MAGNESIUM ASPARTATE HYDROCHLORIDE
     Route: 048
  22. HYDROCORTISONE SODIUM PHOSPHATE [Concomitant]
     Active Substance: HYDROCORTISONE SODIUM PHOSPHATE
     Route: 050
  23. CARBOMER [Concomitant]
     Active Substance: CARBOMER
     Route: 050
  24. FLOXAL [Concomitant]
     Active Substance: OFLOXACIN
     Route: 050
  25. EXCIPIAL U LIPOLOTIO [Concomitant]
     Route: 061
  26. DAFALGAN [Concomitant]
     Active Substance: ACETAMINOPHEN
     Route: 048
  27. CODEINE PHOSPHATE\GUAIFENESIN [Concomitant]
     Active Substance: CODEINE PHOSPHATE\GUAIFENESIN
     Route: 048
  28. PERFLUOROHEXYLOCTANE [Concomitant]
     Active Substance: PERFLUOROHEXYLOCTANE
     Route: 050

REACTIONS (4)
  - Pulmonary function test decreased [Unknown]
  - Exercise tolerance decreased [Not Recovered/Not Resolved]
  - Autonomic nervous system imbalance [Not Recovered/Not Resolved]
  - Off label use [Unknown]

NARRATIVE: CASE EVENT DATE: 20240201
